FAERS Safety Report 10154739 (Version 1)
Quarter: 2014Q2

REPORT INFORMATION
  Report Type: Spontaneous
  Country: US (occurrence: None)
  Receive Date: 20140505
  Receipt Date: 20140505
  Transmission Date: 20141212
  Serious: No
  Sender: FDA-Public Use
  Company Number: None

PATIENT
  Age: 35 Year
  Sex: Male
  Weight: 88.45 kg

DRUGS (1)
  1. CIPROFLOXACIN [Suspect]
     Indication: CHLAMYDIAL INFECTION
     Route: 048
     Dates: start: 20140421, end: 20140422

REACTIONS (7)
  - Paraesthesia [None]
  - Muscle spasms [None]
  - Hypoaesthesia [None]
  - Dry mouth [None]
  - Dry skin [None]
  - Dry eye [None]
  - Feeling cold [None]
